FAERS Safety Report 7110772-3 (Version None)
Quarter: 2010Q4

REPORT INFORMATION
  Report Type: 
  Country: None (occurrence: None)
  Receive Date: 20101118
  Receipt Date: 20101110
  Transmission Date: 20110411
  Serious: Yes (Death)
  Sender: FDA-Public Use
  Company Number: B0684907A

PATIENT
  Age: 16 Year

DRUGS (3)
  1. SEROXAT [Suspect]
     Indication: BIPOLAR DISORDER
     Route: 048
  2. QUETIAPINE FUMARATE [Suspect]
     Indication: BIPOLAR DISORDER
     Route: 065
  3. LITHIUM CARBONATE [Suspect]
     Indication: BIPOLAR DISORDER
     Route: 065

REACTIONS (1)
  - HEPATIC FAILURE [None]
